FAERS Safety Report 6439715-2 (Version None)
Quarter: 2009Q4

REPORT INFORMATION
  Report Type: 
  Country: None (occurrence: None)
  Receive Date: 20091113
  Receipt Date: 20091104
  Transmission Date: 20100525
  Serious: Yes (Hospitalization)
  Sender: FDA-Public Use
  Company Number: FR-ELI_LILLY_AND_COMPANY-FR200911000812

PATIENT
  Sex: Male

DRUGS (4)
  1. ALIMTA [Suspect]
     Indication: NON-SMALL CELL LUNG CANCER
     Dosage: 925 MG, UNKNOWN
     Route: 042
     Dates: start: 20090915, end: 20090915
  2. AVASTIN [Concomitant]
     Indication: NON-SMALL CELL LUNG CANCER
     Dosage: UNK, UNKNOWN
     Route: 042
     Dates: start: 20090915, end: 20090915
  3. CISPLATIN [Concomitant]
     Indication: NON-SMALL CELL LUNG CANCER
     Dosage: 139 MG, UNKNOWN
     Route: 042
     Dates: start: 20090915, end: 20090915
  4. INNOHEP [Concomitant]
     Indication: VENOUS THROMBOSIS
     Dosage: UNK, UNKNOWN
     Route: 065
     Dates: start: 20090701

REACTIONS (5)
  - ABDOMINAL PAIN LOWER [None]
  - ABDOMINAL PAIN UPPER [None]
  - CHEST PAIN [None]
  - RENAL INFARCT [None]
  - SPLENIC INFARCTION [None]
